FAERS Safety Report 9277583 (Version 1)
Quarter: 2013Q2

REPORT INFORMATION
  Report Type: Report from Study
  Country: CA (occurrence: CA)
  Receive Date: 20130508
  Receipt Date: 20130508
  Transmission Date: 20140414
  Serious: Yes (Other)
  Sender: FDA-Public Use
  Company Number: CA-JNJFOC-20130417766

PATIENT
  Sex: Female
  Weight: 88 kg

DRUGS (4)
  1. REMICADE [Suspect]
     Indication: CROHN^S DISEASE
     Route: 042
  2. REMICADE [Suspect]
     Indication: CROHN^S DISEASE
     Route: 042
     Dates: start: 20130429
  3. REACTINE [Concomitant]
     Indication: PREMEDICATION
     Dosage: USUALLY PATIENT TAKES AT HOME 5 DAYS PRIOR TO INFLIXIMAB INFUSION.
     Route: 065
  4. BENADRYL [Concomitant]
     Indication: HYPERSENSITIVITY
     Dosage: USUALLY PATIENT TAKES AT HOME 5 DAYS PRIOR TO INFLIXIMAB INFUSION.
     Route: 042

REACTIONS (1)
  - Neoplasm skin [Not Recovered/Not Resolved]
